FAERS Safety Report 17218582 (Version 2)
Quarter: 2020Q1

REPORT INFORMATION
  Report Type: Spontaneous
  Country: US (occurrence: US)
  Receive Date: 20191231
  Receipt Date: 20200117
  Transmission Date: 20200409
  Serious: Yes (Hospitalization)
  Sender: FDA-Public Use
  Company Number: US-ZYDUS-045009

PATIENT
  Age: 60 Year
  Sex: Female

DRUGS (6)
  1. INSULIN GLARGINE [Concomitant]
     Active Substance: INSULIN GLARGINE
  2. METFORMIN [Suspect]
     Active Substance: METFORMIN HYDROCHLORIDE
     Indication: DIABETES MELLITUS
     Route: 048
  3. LOVASTATIN. [Concomitant]
     Active Substance: LOVASTATIN
  4. AMLODIPINE [Concomitant]
     Active Substance: AMLODIPINE BESYLATE
  5. ACETAZOLAMIDE/ACETAZOLAMIDE SODIUM [Concomitant]
  6. LISINOPRIL/LISINOPRIL DIHYDRATE [Concomitant]
     Active Substance: LISINOPRIL

REACTIONS (8)
  - Atrial fibrillation [Recovering/Resolving]
  - Vomiting [Recovering/Resolving]
  - Lactic acidosis [Recovering/Resolving]
  - Diarrhoea [Recovering/Resolving]
  - Toxicity to various agents [Recovering/Resolving]
  - Confusional state [Recovering/Resolving]
  - Abdominal pain [Recovering/Resolving]
  - Nausea [Recovering/Resolving]
